FAERS Safety Report 20895793 (Version 2)
Quarter: 2022Q2

REPORT INFORMATION
  Report Type: Spontaneous
  Country: JP (occurrence: JP)
  Receive Date: 20220531
  Receipt Date: 20220608
  Transmission Date: 20220720
  Serious: Yes (Other)
  Sender: FDA-Public Use
  Company Number: JP-SCALL-2022-JP-000179

PATIENT
  Age: 54 Year
  Sex: Female

DRUGS (5)
  1. DUTASTERIDE [Suspect]
     Active Substance: DUTASTERIDE
     Indication: Product used for unknown indication
     Route: 065
  2. CYMBALTA [Concomitant]
     Active Substance: DULOXETINE HYDROCHLORIDE
     Route: 065
  3. MYSLEE TABLETS [Concomitant]
     Route: 065
  4. SOLANAX TABLETS [Concomitant]
     Route: 065
  5. ETIZOLAM [Concomitant]
     Active Substance: ETIZOLAM
     Route: 065

REACTIONS (3)
  - Epilepsy [Recovered/Resolved]
  - Syncope [Recovered/Resolved]
  - Contraindicated product administered [Unknown]
